FAERS Safety Report 10062731 (Version 2)
Quarter: 2014Q2

REPORT INFORMATION
  Report Type: Spontaneous
  Country: JP (occurrence: JP)
  Receive Date: 20140407
  Receipt Date: 20140501
  Transmission Date: 20141212
  Serious: Yes (Hospitalization)
  Sender: FDA-Public Use
  Company Number: JP-GLAXOSMITHKLINE-B0973846A

PATIENT
  Age: 79 Year
  Sex: Male

DRUGS (3)
  1. VALTREX [Suspect]
     Indication: HERPES ZOSTER
     Dosage: 1000MG THREE TIMES PER DAY
     Route: 048
     Dates: start: 20140217, end: 20140224
  2. METHYCOBAL [Concomitant]
     Route: 065
     Dates: start: 20140217
  3. LIDOMEX [Concomitant]
     Route: 061
     Dates: start: 20140217

REACTIONS (6)
  - Renal impairment [Recovering/Resolving]
  - Renal failure acute [Recovering/Resolving]
  - Malaise [Recovering/Resolving]
  - Hyperkalaemia [Recovering/Resolving]
  - Renal disorder [Recovering/Resolving]
  - Blood creatinine increased [Recovering/Resolving]
